FAERS Safety Report 9060311 (Version 3)
Quarter: 2013Q1

REPORT INFORMATION
  Report Type: Spontaneous
  Country: BR (occurrence: BR)
  Receive Date: 20130212
  Receipt Date: 20130315
  Transmission Date: 20140127
  Serious: Yes (Other)
  Sender: FDA-Public Use
  Company Number: BR-ROCHE-1189396

PATIENT
  Sex: Male
  Weight: 85 kg

DRUGS (8)
  1. XOLAIR [Suspect]
     Indication: ASTHMA
     Route: 058
     Dates: start: 20121129
  2. PREDNISONE [Concomitant]
  3. AZITHROMYCIN [Concomitant]
     Route: 065
  4. SPIRIVA [Concomitant]
     Route: 065
  5. SERETIDE [Concomitant]
     Route: 065
  6. OMEPRAZOLE [Concomitant]
  7. SPIRONOLACTONE [Concomitant]
     Route: 065
  8. AMLODIPINE [Concomitant]

REACTIONS (7)
  - Influenza [Recovered/Resolved]
  - Insomnia [Recovered/Resolved]
  - Agitation [Recovered/Resolved]
  - Agitation [Recovered/Resolved]
  - Drug ineffective [Unknown]
  - Decreased immune responsiveness [Unknown]
  - Fatigue [Unknown]
